FAERS Safety Report 10180216 (Version 1)
Quarter: 2014Q2

REPORT INFORMATION
  Report Type: Spontaneous
  Country: US (occurrence: US)
  Receive Date: 20140519
  Receipt Date: 20140519
  Transmission Date: 20141212
  Serious: No
  Sender: FDA-Public Use
  Company Number: US-AMGEN INC.-USASP2013087525

PATIENT
  Age: 76 Year
  Sex: Female

DRUGS (2)
  1. PROLIA [Suspect]
     Indication: OSTEOPENIA
     Dosage: 1 MG, UNK
     Route: 058
     Dates: start: 20130810
  2. FISH OIL [Concomitant]

REACTIONS (3)
  - Nodule [Unknown]
  - Macule [Unknown]
  - Pruritus [Unknown]
